FAERS Safety Report 17545174 (Version 1)
Quarter: 2020Q1

REPORT INFORMATION
  Report Type: Report from Study
  Country: US (occurrence: US)
  Receive Date: 20200316
  Receipt Date: 20200316
  Transmission Date: 20200409
  Serious: Yes (Other)
  Sender: FDA-Public Use
  Company Number: US-GILEAD-2020-0454942

PATIENT
  Sex: Female

DRUGS (1)
  1. LEDIPASVIR/SOFOSBUVIR [Suspect]
     Active Substance: LEDIPASVIR\SOFOSBUVIR
     Indication: CHRONIC HEPATITIS C
     Dosage: 1 DOSAGE FORM, QD
     Route: 048
     Dates: start: 20160321, end: 20160613

REACTIONS (9)
  - Amnesia [Not Recovered/Not Resolved]
  - Immune system disorder [Not Recovered/Not Resolved]
  - Eye disorder [Unknown]
  - Nightmare [Unknown]
  - Claustrophobia [Unknown]
  - Liver injury [Unknown]
  - Panic attack [Unknown]
  - Mental disorder [Unknown]
  - Discomfort [Unknown]

NARRATIVE: CASE EVENT DATE: 20160613
